FAERS Safety Report 11403208 (Version 1)
Quarter: 2015Q3

REPORT INFORMATION
  Report Type: Spontaneous
  Country: US (occurrence: US)
  Receive Date: 20150821
  Receipt Date: 20150821
  Transmission Date: 20151125
  Serious: Yes (Other)
  Sender: FDA-Public Use
  Company Number: US-PROCTER_AND_GAMBLE-CIO15051639

PATIENT
  Sex: Male

DRUGS (1)
  1. CREST ANTI CAVITY REGULAR [Suspect]
     Active Substance: SODIUM FLUORIDE
     Dosage: UNK
     Route: 002

REACTIONS (1)
  - Hypersensitivity [Not Recovered/Not Resolved]
